FAERS Safety Report 22084968 (Version 5)
Quarter: 2023Q2

REPORT INFORMATION
  Report Type: Spontaneous
  Country: US (occurrence: US)
  Receive Date: 20230310
  Receipt Date: 20230429
  Transmission Date: 20230721
  Serious: No
  Sender: FDA-Public Use
  Company Number: US-PFIZER INC-2020386979

PATIENT
  Age: 75 Year
  Sex: Female
  Weight: 68.027 kg

DRUGS (3)
  1. PREMARIN [Suspect]
     Active Substance: ESTROGENS, CONJUGATED
     Indication: Hormone replacement therapy
     Dosage: 0.9 MG, 1X/DAY
     Route: 048
     Dates: start: 1980
  2. PREMARIN [Suspect]
     Active Substance: ESTROGENS, CONJUGATED
     Dosage: 0.9 MG, DAILY (TAKING 3 OF THE 0.3MG TABLETS)
     Route: 048
  3. PREMARIN [Suspect]
     Active Substance: ESTROGENS, CONJUGATED
     Dosage: 1.25 MG, 1X/DAY (1.25MG TABLET, ONCE DAILY BY MOUTH)
     Route: 048

REACTIONS (3)
  - Product dispensing error [Unknown]
  - Malaise [Unknown]
  - Memory impairment [Unknown]
